FAERS Safety Report 8299533-X (Version None)
Quarter: 2012Q2

REPORT INFORMATION
  Report Type: 
  Country: None (occurrence: None)
  Receive Date: 20120419
  Receipt Date: 20120403
  Transmission Date: 20120825
  Serious: Yes (Other)
  Sender: FDA-Public Use
  Company Number: CHPA2012US001214

PATIENT
  Sex: Female

DRUGS (1)
  1. EXCEDRIN BACK \+ BODY CAPLETS [Suspect]
     Dosage: UNK, UNK
     Route: 048

REACTIONS (5)
  - MALAISE [None]
  - HYPOAESTHESIA [None]
  - FATIGUE [None]
  - ABDOMINAL DISCOMFORT [None]
  - LOSS OF CONSCIOUSNESS [None]
